FAERS Safety Report 5692183-0 (Version None)
Quarter: 2008Q2

REPORT INFORMATION
  Report Type: 
  Country: None (occurrence: None)
  Receive Date: 20080402
  Receipt Date: 20080331
  Transmission Date: 20081010
  Serious: Yes (Life-Threatening, Disabling)
  Sender: FDA-Public Use
  Company Number: B0508691A

PATIENT
  Age: 79 Year
  Sex: Female
  Weight: 50 kg

DRUGS (7)
  1. VALTREX [Suspect]
     Indication: HERPES ZOSTER
     Dosage: 1000MG THREE TIMES PER DAY
     Route: 048
     Dates: start: 20080212, end: 20080215
  2. ASPIRIN [Concomitant]
     Indication: DRUG USE FOR UNKNOWN INDICATION
     Route: 048
  3. TANATRIL [Concomitant]
     Indication: HYPERTENSION
     Route: 048
     Dates: end: 20080215
  4. BASEN [Concomitant]
     Indication: DIABETES MELLITUS
     Route: 048
     Dates: end: 20080215
  5. SIMVASTATIN [Concomitant]
     Route: 048
     Dates: end: 20080215
  6. SHINLUCK [Concomitant]
     Indication: CONSTIPATION
     Route: 048
     Dates: end: 20080215
  7. PENFILL 30R [Concomitant]
     Indication: DIABETES MELLITUS
     Route: 058
     Dates: end: 20080215

REACTIONS (3)
  - RENAL FAILURE ACUTE [None]
  - SOMNOLENCE [None]
  - SPEECH DISORDER [None]
